FAERS Safety Report 7383024-4 (Version None)
Quarter: 2011Q1

REPORT INFORMATION
  Report Type: 
  Country: None (occurrence: None)
  Receive Date: 20110330
  Receipt Date: 20110324
  Transmission Date: 20110831
  Serious: Yes (Other)
  Sender: FDA-Public Use
  Company Number: US-PFIZER INC-2011065979

PATIENT
  Sex: Female

DRUGS (3)
  1. RAPAMUNE [Suspect]
     Indication: LIVER TRANSPLANT
     Dosage: UNSPECIFIED
  2. PREDNISONE [Suspect]
     Indication: LIVER TRANSPLANT
     Dosage: TAPER
  3. SULFAMETHOXAZOLE W/TRIMETHOPRIM [Suspect]

REACTIONS (1)
  - HEPATIC FUNCTION ABNORMAL [None]
